FAERS Safety Report 5332895-1 (Version None)
Quarter: 2007Q2

REPORT INFORMATION
  Report Type: 
  Country: None (occurrence: None)
  Receive Date: 20070521
  Receipt Date: 20070514
  Transmission Date: 20071010
  Serious: Yes (Hospitalization, Other)
  Sender: FDA-Public Use
  Company Number: 2007SP007669

PATIENT
  Age: 68 Year
  Sex: Male

DRUGS (3)
  1. VIRAFERONPEG [Suspect]
     Indication: HEPATITIS C
     Dosage: ;QW;SC
     Route: 058
     Dates: start: 20010301, end: 20020301
  2. REBETOL [Suspect]
     Indication: HEPATITIS C
     Dosage: ;PO
     Route: 048
  3. ZOLOFT [Concomitant]

REACTIONS (10)
  - AGGRESSION [None]
  - ASTHENIA [None]
  - CONFUSIONAL STATE [None]
  - DELUSION [None]
  - DEPRESSION [None]
  - DISORIENTATION [None]
  - HAEMOGLOBIN DECREASED [None]
  - MENTAL DISORDER [None]
  - SCIATICA [None]
  - SENSE OF OPPRESSION [None]
